FAERS Safety Report 4981099-0 (Version None)
Quarter: 2006Q2

REPORT INFORMATION
  Report Type: 
  Country: None (occurrence: None)
  Receive Date: 20060418
  Receipt Date: 20060327
  Transmission Date: 20061013
  Serious: Yes (Other)
  Sender: FDA-Public Use
  Company Number: USA050290495

PATIENT
  Age: 33 Year
  Sex: Female

DRUGS (5)
  1. PROZAC [Suspect]
     Indication: OBSESSIVE-COMPULSIVE DISORDER
     Dosage: 80 MG, DAILY (1/D)
     Dates: start: 20020101
  2. ZYRTEC [Concomitant]
  3. FLONASE [Concomitant]
  4. PRENATAL VITAMINS (ASCORBIC ACID, BIOTIN, MINERALS NOS, NICOTINIC ACID [Concomitant]
  5. FOLATE SODIUM (FOLATE SODIUM) [Concomitant]

REACTIONS (4)
  - CAESAREAN SECTION [None]
  - DRUG EXPOSURE DURING PREGNANCY [None]
  - PRE-ECLAMPSIA [None]
  - PREGNANCY [None]
